FAERS Safety Report 7311812-9 (Version None)
Quarter: 2011Q1

REPORT INFORMATION
  Report Type: 
  Country: None (occurrence: None)
  Receive Date: 20110224
  Receipt Date: 20110217
  Transmission Date: 20110831
  Serious: Yes (Other)
  Sender: FDA-Public Use
  Company Number: US-BRISTOL-MYERS SQUIBB COMPANY-15556376

PATIENT
  Sex: Female

DRUGS (9)
  1. ORENCIA [Suspect]
     Dates: start: 20100601
  2. CALCIUM [Concomitant]
  3. REMICADE [Concomitant]
  4. PEPCID [Concomitant]
     Indication: GASTROOESOPHAGEAL REFLUX DISEASE
  5. RITUXAN [Concomitant]
  6. METHOTREXATE [Concomitant]
     Dosage: 1DF:0.9 UNITS NOS INJ
  7. FOLIC ACID [Concomitant]
  8. CENTRUM [Concomitant]
  9. ALBUTEROL INHALER [Concomitant]

REACTIONS (5)
  - URINE ODOUR ABNORMAL [None]
  - ASTHMA [None]
  - DRUG INEFFECTIVE [None]
  - HYPERHIDROSIS [None]
  - SKIN ODOUR ABNORMAL [None]
